FAERS Safety Report 4450456-3 (Version None)
Quarter: 2004Q3

REPORT INFORMATION
  Report Type: 
  Country: None (occurrence: None)
  Receive Date: 20040915
  Receipt Date: 20040830
  Transmission Date: 20050211
  Serious: Yes (Death, Disabling, Other)
  Sender: FDA-Public Use
  Company Number: FR-SHR-04-023157

PATIENT
  Age: 27 Month
  Sex: Female

DRUGS (22)
  1. FLUDARA [Suspect]
     Indication: ACUTE MYELOID LEUKAEMIA
     Dosage: 17 MG, 1X/DAY , INTRAVENOUS
     Route: 042
     Dates: start: 20030621, end: 20030625
  2. CYTARABINE [Suspect]
     Indication: ACUTE MYELOID LEUKAEMIA
     Dosage: INTRATHECAL
     Route: 037
     Dates: start: 20030620, end: 20030620
  3. CYTARABINE [Suspect]
     Indication: ACUTE MYELOID LEUKAEMIA
     Dosage: INTRATHECAL
     Route: 037
     Dates: start: 20030621, end: 20030625
  4. NEUPOGEN [Suspect]
     Dosage: 110 UG/DAY, INTRA-AMNIOTIC : 70 UG/DAY
     Route: 012
     Dates: start: 20030621, end: 20030625
  5. NEUPOGEN [Suspect]
     Dosage: 110 UG/DAY, INTRA-AMNIOTIC : 70 UG/DAY
     Route: 012
     Dates: start: 20030705, end: 20030707
  6. AMBISOME [Suspect]
     Dosage: 40 MG, 1X/DAY , INTRAVENOUS : 40 MG, 1X/DAY
     Route: 042
     Dates: start: 20030623, end: 20030625
  7. AMBISOME [Suspect]
     Dosage: 40 MG, 1X/DAY , INTRAVENOUS : 40 MG, 1X/DAY
     Route: 042
     Dates: start: 20030704, end: 20030707
  8. DAUNOXOME [Concomitant]
  9. BACTRIM [Concomitant]
  10. ONDANSETRON HYDROCHLORIDE [Concomitant]
  11. FORTUM (CEFTAZIDIME PENTAHYDRATE) [Concomitant]
  12. AMIKACIN [Concomitant]
  13. VANCOMYCIN [Concomitant]
  14. PERFALGAN [Concomitant]
  15. FASTURTEC (RASBURICASE) [Concomitant]
  16. ZOVIRAX (ACICLOVIR SODIUM) [Concomitant]
  17. HEPARIN [Concomitant]
  18. ARTIFICIAL TEARS [Concomitant]
  19. CHIBRO-CADRON (DEXAMETHASONE SODIUM PHOSPHATE) [Concomitant]
  20. POLARAMINE [Concomitant]
  21. PLITICAN (ALIZAPRIDE HYDROCHLORIDE) [Concomitant]
  22. NICARDIPINE HCL [Concomitant]

REACTIONS (9)
  - BLINDNESS [None]
  - CAECITIS [None]
  - ELECTROENCEPHALOGRAM ABNORMAL [None]
  - GRAFT COMPLICATION [None]
  - MULTI-ORGAN FAILURE [None]
  - OPTIC NERVE INFARCTION [None]
  - PETIT MAL EPILEPSY [None]
  - PYREXIA [None]
  - VASCULITIS CEREBRAL [None]
